FAERS Safety Report 7406857-4 (Version None)
Quarter: 2011Q2

REPORT INFORMATION
  Report Type: 
  Country: None (occurrence: None)
  Receive Date: 20110406
  Receipt Date: 20110406
  Transmission Date: 20111010
  Serious: Yes (Hospitalization)
  Sender: FDA-Public Use
  Company Number: None

PATIENT
  Age: 69 Year
  Sex: Male
  Weight: 103.8 kg

DRUGS (11)
  1. DOCETAXEL [Suspect]
     Indication: NON-SMALL CELL LUNG CANCER
     Dosage: 75MG/M2, IV DAY 1 Q3W
     Route: 042
     Dates: start: 20110301
  2. LOPERAMIDE HCL [Concomitant]
  3. NEULASTA [Concomitant]
  4. AVODART [Concomitant]
  5. PROCHLOPERAZINE [Concomitant]
  6. LORATADINE [Concomitant]
  7. BEVACIZUMAB [Suspect]
     Indication: NON-SMALL CELL LUNG CANCER
     Dosage: 15MG/KG, IV DAY 1 Q3W
     Route: 042
     Dates: start: 20110301
  8. HYCODAN [Concomitant]
  9. GEMCITABINE [Suspect]
     Indication: NON-SMALL CELL LUNG CANCER
     Dosage: 900MG/M2, IV DAYS1+8 Q3W
     Route: 042
     Dates: start: 20110308
  10. DEXAMETHASONE [Concomitant]
  11. ADVAIR DISKUS 100/50 [Concomitant]

REACTIONS (1)
  - UPPER RESPIRATORY TRACT INFECTION [None]
